FAERS Safety Report 4320275-7 (Version None)
Quarter: 2004Q1

REPORT INFORMATION
  Report Type: 
  Country: None (occurrence: None)
  Receive Date: 20040317
  Receipt Date: 20040308
  Transmission Date: 20041129
  Serious: Yes (Life-Threatening, Hospitalization)
  Sender: FDA-Public Use
  Company Number: 2003AP00894

PATIENT
  Age: 71 Year
  Sex: Male

DRUGS (9)
  1. IRESSA [Suspect]
     Indication: LUNG ADENOCARCINOMA
     Dosage: 250 MG DAILY PO
     Route: 048
     Dates: start: 20020918, end: 20021025
  2. IRESSA [Suspect]
     Indication: LUNG ADENOCARCINOMA
     Dosage: 250 MG DAILY PO
     Route: 048
     Dates: start: 20021106
  3. NAVELBINE [Suspect]
     Indication: LUNG ADENOCARCINOMA
     Dosage: 45 MG DAILY IVD
     Route: 042
     Dates: start: 20030128, end: 20030128
  4. NAVELBINE [Suspect]
     Indication: LUNG ADENOCARCINOMA
     Dosage: 35 MG DAILY IVD
     Route: 042
     Dates: start: 20030204, end: 20030204
  5. PARAPLATIN [Suspect]
     Indication: LUNG ADENOCARCINOMA
     Dosage: 500 MG DAILY IVD
     Route: 042
     Dates: start: 20021028, end: 20021028
  6. GEMZAR [Concomitant]
  7. ZYROLIC ^AES^ [Concomitant]
  8. GASTER [Concomitant]
  9. GEMCITABINE [Concomitant]

REACTIONS (6)
  - BONE MARROW TOXICITY [None]
  - DERMATITIS [None]
  - DRUG INEFFECTIVE [None]
  - FEBRILE NEUTROPENIA [None]
  - HAEMATOTOXICITY [None]
  - LEUKOPENIA [None]
